FAERS Safety Report 7997190-0 (Version None)
Quarter: 2011Q4

REPORT INFORMATION
  Report Type: 
  Country: None (occurrence: None)
  Receive Date: 20111221
  Receipt Date: 20111211
  Transmission Date: 20120403
  Serious: Yes (Other)
  Sender: FDA-Public Use
  Company Number: PHHO2007BR09439

PATIENT
  Age: 55 Year
  Sex: Male
  Weight: 92 kg

DRUGS (1)
  1. DIOVAN HCT [Suspect]
     Indication: HYPERTENSION
     Dosage: 80/12.5MG
     Dates: start: 20061101

REACTIONS (4)
  - INSULIN RESISTANCE [None]
  - SERUM FERRITIN INCREASED [None]
  - CHRONIC LYMPHOCYTIC LEUKAEMIA [None]
  - HEPATIC STEATOSIS [None]
